FAERS Safety Report 13770200 (Version 1)
Quarter: 2017Q3

REPORT INFORMATION
  Report Type: Spontaneous
  Country: PL (occurrence: PL)
  Receive Date: 20170719
  Receipt Date: 20170719
  Transmission Date: 20171127
  Serious: Yes (Other)
  Sender: FDA-Public Use
  Company Number: PL-BAUSCH-BL-2017-022057

PATIENT
  Age: 54 Year
  Sex: Female

DRUGS (4)
  1. FLUOROURACIL. [Suspect]
     Active Substance: FLUOROURACIL
     Indication: MUCINOUS ADENOCARCINOMA OF APPENDIX
     Route: 040
     Dates: start: 201202, end: 201207
  2. FLUOROURACIL. [Suspect]
     Active Substance: FLUOROURACIL
     Dosage: IN A 48-HOUR
     Route: 065
     Dates: start: 201202, end: 201207
  3. FOLINIC ACID [Suspect]
     Active Substance: LEUCOVORIN
     Indication: MUCINOUS ADENOCARCINOMA OF APPENDIX
     Dosage: IN A 2-HOUR INFUSION
     Route: 065
     Dates: start: 201202, end: 201207
  4. OXALIPLATIN. [Suspect]
     Active Substance: OXALIPLATIN
     Indication: MUCINOUS ADENOCARCINOMA OF APPENDIX
     Dosage: 85 MG/M2 IN A 2-HOUR INFUSION
     Route: 065
     Dates: start: 201202, end: 201207

REACTIONS (1)
  - Neutropenia [Unknown]
